FAERS Safety Report 22155296 (Version 2)
Quarter: 2023Q2

REPORT INFORMATION
  Report Type: Spontaneous
  Country: GB (occurrence: GB)
  Receive Date: 20230330
  Receipt Date: 20230414
  Transmission Date: 20230722
  Serious: Yes (Other)
  Sender: FDA-Public Use
  Company Number: GB-LABORATORIOS LICONSA S.A.-2303GB01328

PATIENT
  Age: 82 Year
  Sex: Female
  Weight: 63 kg

DRUGS (3)
  1. OMEPRAZOLE [Suspect]
     Active Substance: OMEPRAZOLE
     Indication: Product used for unknown indication
     Dosage: UNK
     Route: 065
  2. SOOLANTRA [Concomitant]
     Active Substance: IVERMECTIN
     Indication: Product used for unknown indication
     Dosage: UNK UNK, QD
     Dates: start: 20220305
  3. SOOLANTRA [Concomitant]
     Active Substance: IVERMECTIN
     Indication: Acne

REACTIONS (2)
  - Renal cancer [Unknown]
  - Heart rate irregular [Unknown]

NARRATIVE: CASE EVENT DATE: 20170426
